FAERS Safety Report 6603852-X (Version None)
Quarter: 2010Q1

REPORT INFORMATION
  Report Type: 
  Country: None (occurrence: None)
  Receive Date: 20100226
  Receipt Date: 20090312
  Transmission Date: 20100710
  Serious: No
  Sender: FDA-Public Use
  Company Number: A0770001A

PATIENT
  Age: 47 Year
  Sex: Female
  Weight: 77.3 kg

DRUGS (6)
  1. LAMOTRIGINE [Suspect]
     Indication: BIPOLAR DISORDER
     Dosage: 200MG TWICE PER DAY
     Route: 048
  2. TOPAMAX [Concomitant]
     Dosage: 200MG TWICE PER DAY
     Dates: end: 20090301
  3. TRAZODONE HCL [Concomitant]
     Dosage: 100MG VARIABLE DOSE
  4. DOXEPIN HCL [Concomitant]
     Dosage: 25MG VARIABLE DOSE
  5. COGENTIN [Concomitant]
     Dosage: 2MG VARIABLE DOSE
  6. INVEGA [Concomitant]
     Dosage: 9MG PER DAY
     Route: 048
     Dates: end: 20090301

REACTIONS (1)
  - GLOSSITIS [None]
